FAERS Safety Report 7587082-3 (Version None)
Quarter: 2011Q3

REPORT INFORMATION
  Report Type: 
  Country: None (occurrence: None)
  Receive Date: 20110701
  Receipt Date: 20110620
  Transmission Date: 20111222
  Serious: Yes (Hospitalization)
  Sender: FDA-Public Use
  Company Number: PHHY2011SA54112

PATIENT
  Age: 55 Year
  Sex: Male

DRUGS (1)
  1. ZOLEDRONIC ACID [Suspect]
     Indication: OSTEOPOROSIS
     Dosage: 5 MG, UNK
     Route: 042

REACTIONS (6)
  - PYREXIA [None]
  - MYALGIA [None]
  - PAIN [None]
  - MOVEMENT DISORDER [None]
  - TREMOR [None]
  - CHEST PAIN [None]
